FAERS Safety Report 16724597 (Version 3)
Quarter: 2019Q4

REPORT INFORMATION
  Report Type: Spontaneous
  Country: US (occurrence: US)
  Receive Date: 20190821
  Receipt Date: 20191028
  Transmission Date: 20200122
  Serious: No
  Sender: FDA-Public Use
  Company Number: US-PFIZER INC-2018390835

PATIENT
  Age: 59 Year
  Sex: Female
  Weight: 79.37 kg

DRUGS (3)
  1. LYRICA [Suspect]
     Active Substance: PREGABALIN
     Indication: FIBROMYALGIA
     Dosage: 150 MG, 4X/DAY
     Route: 048
  2. LYRICA [Suspect]
     Active Substance: PREGABALIN
     Indication: MIGRAINE
     Dosage: UNK, ALTERNATE DAY(SHE IS TAKING IT ONCE DAILY AND THEN EVERY OTHER DAY)
  3. LYRICA [Suspect]
     Active Substance: PREGABALIN
     Indication: MIGRAINE WITHOUT AURA
     Dosage: 150 MG, 4X/DAY
     Route: 048

REACTIONS (2)
  - Feeling abnormal [Unknown]
  - Intentional product misuse [Not Recovered/Not Resolved]
